FAERS Safety Report 19244448 (Version 2)
Quarter: 2021Q2

REPORT INFORMATION
  Report Type: Other
  Country: CN (occurrence: CN)
  Receive Date: 20210512
  Receipt Date: 20210518
  Transmission Date: 20210717
  Serious: Yes (Other)
  Sender: FDA-Public Use
  Company Number: CN-ROCHE-2828149

PATIENT

DRUGS (4)
  1. ASPIRIN [ACETYLSALICYLIC ACID] [Concomitant]
     Active Substance: ASPIRIN
     Indication: CEREBRAL INFARCTION
     Route: 048
  2. ALTEPLASE. [Suspect]
     Active Substance: ALTEPLASE
     Dosage: THEN 0.81MG/KG RT?PA WAS GIVEN INTRAVENOUS DRIP TO THE PATIENT, AND THE INFUSION WAS COMPLETED IN AB
     Route: 042
  3. ALTEPLASE. [Suspect]
     Active Substance: ALTEPLASE
     Indication: CEREBRAL INFARCTION
     Dosage: INTRAVENOUS THROMBOLYSIS?THE PATIENT WAS INTRAVENOUSLY INJECTED WITH 0.09MG/KG RT?PA, WHICH WAS COMP
     Route: 042
  4. CLOPIDOGREL [Concomitant]
     Active Substance: CLOPIDOGREL BISULFATE
     Indication: CEREBRAL INFARCTION
     Route: 048

REACTIONS (2)
  - Off label use [Unknown]
  - Cerebral haemorrhage [Unknown]
